FAERS Safety Report 21917930 (Version 3)
Quarter: 2023Q1

REPORT INFORMATION
  Report Type: Spontaneous
  Country: US (occurrence: US)
  Receive Date: 20230127
  Receipt Date: 20230215
  Transmission Date: 20230417
  Serious: Yes (Other)
  Sender: FDA-Public Use
  Company Number: US-009507513-2301USA006556

PATIENT
  Sex: Female
  Weight: 86.168 kg

DRUGS (16)
  1. JANUMET XR [Suspect]
     Active Substance: METFORMIN HYDROCHLORIDE\SITAGLIPTIN PHOSPHATE
     Indication: Type 2 diabetes mellitus
     Dosage: ONCE DAILY (QD)
     Route: 048
  2. TYLENOL [Suspect]
     Active Substance: ACETAMINOPHEN
     Indication: Headache
     Dosage: UNK
     Dates: start: 202301
  3. FOSAMAX [Concomitant]
     Active Substance: ALENDRONATE SODIUM
     Dosage: WEEKLY (QW)
  4. PREVAGE [Concomitant]
     Dosage: DAILY (QD)
  5. VITAMIN C [Concomitant]
     Active Substance: ASCORBIC ACID
     Dosage: 10000 MILLIGRAM, DAILY (QD)
  6. IBUPROFEN [Concomitant]
     Active Substance: IBUPROFEN
     Dosage: AS NEEDED (PRN)
  7. CHOLECALCIFEROL [Concomitant]
     Active Substance: CHOLECALCIFEROL
     Dosage: 1000 DOSAGE FORM, QD
  8. LEXAPRO [Concomitant]
     Active Substance: ESCITALOPRAM OXALATE
     Dosage: 30 MILLIGRAM, QD
  9. GLIPIZIDE [Concomitant]
     Active Substance: GLIPIZIDE
     Dosage: 10 MILLIGRAM, BID
  10. HYDROCHLOROTHIAZIDE [Concomitant]
     Active Substance: HYDROCHLOROTHIAZIDE
     Dosage: 12.5 (UNIT NOT PROVIDED) DAILY
  11. LOSARTAN [Concomitant]
     Active Substance: LOSARTAN
     Dosage: 100 MILLIGRAM, QD
  12. MELOXICAM [Concomitant]
     Active Substance: MELOXICAM
     Dosage: 150 MILLIGRAM, QD
  13. METFORMIN [Concomitant]
     Active Substance: METFORMIN HYDROCHLORIDE
     Dosage: 1000 MILLIGRAM, BID TWICE DAILY IN LUE OF JANUMET
  14. METOPROLOL [Concomitant]
     Active Substance: METOPROLOL
     Dosage: 25 MILLIGRAM, QD
  15. LYRICA [Concomitant]
     Active Substance: PREGABALIN
     Dosage: 50 MILLIGRAM, TID
  16. CRESTOR [Concomitant]
     Active Substance: ROSUVASTATIN CALCIUM
     Dosage: 40 MILLIGRAM, QD

REACTIONS (20)
  - Intracranial aneurysm [Unknown]
  - Dementia [Unknown]
  - Blood glucose abnormal [Unknown]
  - Gait disturbance [Unknown]
  - Glycosylated haemoglobin abnormal [Unknown]
  - Malaise [Unknown]
  - Fall [Unknown]
  - Ill-defined disorder [Unknown]
  - Drug ineffective [Unknown]
  - Cognitive disorder [Unknown]
  - Hyperlipidaemia [Unknown]
  - Obesity [Unknown]
  - Hypertension [Unknown]
  - Fatigue [Unknown]
  - Headache [Unknown]
  - Back pain [Unknown]
  - Drug hypersensitivity [Unknown]
  - Product dose omission issue [Unknown]
  - Product use issue [Unknown]
  - Inability to afford medication [Unknown]

NARRATIVE: CASE EVENT DATE: 20220101
